FAERS Safety Report 15315219 (Version 1)
Quarter: 2018Q3

REPORT INFORMATION
  Report Type: Spontaneous
  Country: US (occurrence: US)
  Receive Date: 20180815
  Receipt Date: 20180815
  Transmission Date: 20181010
  Serious: No
  Sender: FDA-Public Use
  Company Number: None

PATIENT
  Age: 58 Year
  Sex: Male

DRUGS (11)
  1. RAMIPRIL 10MG [Concomitant]
     Active Substance: RAMIPRIL
     Dates: start: 20160429
  2. JANUVIA [Concomitant]
     Active Substance: SITAGLIPTIN PHOSPHATE
     Dates: start: 20180206
  3. TEMAZEPAM 30MG [Concomitant]
     Active Substance: TEMAZEPAM
     Dates: start: 20170202
  4. VASCEPA 1GM [Concomitant]
     Dates: start: 20160708
  5. TESTOSTERONE CYP 200MG/ML [Concomitant]
     Dates: start: 20170202
  6. LORATADINE D [Concomitant]
     Active Substance: LORATADINE\PSEUDOEPHEDRINE SULFATE
     Dates: start: 20170303
  7. LEVOTHYROXINE 0.075MG [Concomitant]
     Dates: start: 20180608
  8. FLUNISOLIDE 0.025% SOLN [Concomitant]
     Dates: start: 20180604
  9. RANITIDINE. [Concomitant]
     Active Substance: RANITIDINE
     Dates: start: 20171002
  10. GENVOYA [Suspect]
     Active Substance: COBICISTAT\ELVITEGRAVIR\EMTRICITABINE\TENOFOVIR ALAFENAMIDE FUMARATE
     Indication: HIV INFECTION
     Route: 048
     Dates: start: 20180608, end: 20180815
  11. VENLAFAXINE ER 150 CAPSULES [Concomitant]
     Dates: start: 20170202

REACTIONS (2)
  - Depression [None]
  - Condition aggravated [None]

NARRATIVE: CASE EVENT DATE: 20180815
